FAERS Safety Report 15739878 (Version 2)
Quarter: 2019Q1

REPORT INFORMATION
  Report Type: Spontaneous
  Country: US (occurrence: US)
  Receive Date: 20181219
  Receipt Date: 20190305
  Transmission Date: 20190417
  Serious: Yes (Other)
  Sender: FDA-Public Use
  Company Number: US-SA-2018SA342554

PATIENT
  Age: 70 Year
  Sex: Female
  Weight: 60.3 kg

DRUGS (3)
  1. TAXOTERE [Suspect]
     Active Substance: DOCETAXEL
     Indication: BREAST CANCER FEMALE
     Dosage: 250 ML, QOW
     Route: 042
     Dates: start: 20110505, end: 20110505
  2. TAXOTERE [Suspect]
     Active Substance: DOCETAXEL
     Dosage: 250 ML, QOW
     Route: 042
     Dates: start: 20110707, end: 20110707
  3. CYTOXAN [Concomitant]
     Active Substance: CYCLOPHOSPHAMIDE
     Dosage: 100 ML, UNK
     Route: 065

REACTIONS (2)
  - Alopecia [Not Recovered/Not Resolved]
  - Psychological trauma [Unknown]

NARRATIVE: CASE EVENT DATE: 201201
